FAERS Safety Report 4683572-1 (Version None)
Quarter: 2005Q2

REPORT INFORMATION
  Report Type: 
  Country: None (occurrence: None)
  Receive Date: 20050603
  Receipt Date: 20050603
  Transmission Date: 20051028
  Serious: Yes (Life-Threatening, Hospitalization)
  Sender: FDA-Public Use
  Company Number: None

PATIENT
  Age: 78 Year
  Sex: Female
  Weight: 65 kg

DRUGS (1)
  1. CEFEPIME INJ [Suspect]
     Indication: PNEUMONIA
     Dosage: 2 GM ONCE DAILY
     Dates: start: 20050307, end: 20050320

REACTIONS (4)
  - COMA [None]
  - DYSKINESIA [None]
  - ENCEPHALOPATHY [None]
  - MENTAL STATUS CHANGES [None]
